FAERS Safety Report 8525923-3 (Version None)
Quarter: 2012Q3

REPORT INFORMATION
  Report Type: 
  Country: None (occurrence: None)
  Receive Date: 20120720
  Receipt Date: 20120713
  Transmission Date: 20120928
  Serious: No
  Sender: FDA-Public Use
  Company Number: US-PFIZER INC-2012166231

PATIENT
  Age: 48 Year
  Sex: Female

DRUGS (1)
  1. VANCOMYCIN HYCHLORIDE [Suspect]
     Dosage: UNK
     Dates: start: 20110103, end: 20110107

REACTIONS (4)
  - ERYTHEMA [None]
  - RED MAN SYNDROME [None]
  - BLOOD LACTIC ACID INCREASED [None]
  - PRURITUS [None]
